FAERS Safety Report 15660596 (Version 5)
Quarter: 2019Q4

REPORT INFORMATION
  Report Type: Spontaneous
  Country: JP (occurrence: JP)
  Receive Date: 20181127
  Receipt Date: 20191004
  Transmission Date: 20200122
  Serious: Yes (Death, Hospitalization, Other)
  Sender: FDA-Public Use
  Company Number: JP-ASTRAZENECA-2018SF38500

PATIENT
  Age: 26952 Day
  Sex: Male
  Weight: 58 kg

DRUGS (13)
  1. TAGRISSO [Suspect]
     Active Substance: OSIMERTINIB
     Indication: NON-SMALL CELL LUNG CANCER
     Route: 048
     Dates: start: 20180915, end: 20181008
  2. ISOTONIC SODIUM CHLORIDE SOLUTION [Concomitant]
     Active Substance: SODIUM CHLORIDE
     Dosage: 500 ML, INTRAVENOUS INJECTION VIA A PERIPHERAL ROUTE, DOSE UNKNOWN
     Route: 042
  3. MEROPENEM. [Concomitant]
     Active Substance: MEROPENEM
     Dosage: 2V, INTRAVENOUS INJECTION AT 22:00, DOSE UNKNOWN
     Route: 042
  4. SEISHOKU [Concomitant]
     Active Substance: SODIUM CHLORIDE
     Dosage: 100 ML, PERIPHERAL ROUTE, INTRAVENOUS INJECTION VIA A BYPASS, DOSE UNKNOWN
     Route: 042
  5. CYCLOPHOSPHAMIDE HYDRATE [Suspect]
     Active Substance: CYCLOPHOSPHAMIDE
     Indication: LUNG DISORDER
     Route: 048
     Dates: start: 20181026, end: 20181028
  6. CYCLOPHOSPHAMIDE HYDRATE [Suspect]
     Active Substance: CYCLOPHOSPHAMIDE
     Indication: LUNG DISORDER
     Route: 048
     Dates: start: 20181029, end: 20181109
  7. CYCLOPHOSPHAMIDE HYDRATE [Suspect]
     Active Substance: CYCLOPHOSPHAMIDE
     Indication: LUNG DISORDER
     Route: 048
     Dates: start: 20181110, end: 20181112
  8. BETAMETHASONE. [Concomitant]
     Active Substance: BETAMETHASONE
     Indication: LYMPHANGIOSIS CARCINOMATOSA
     Route: 048
     Dates: start: 20180907, end: 20180915
  9. HIRUDOID [Concomitant]
     Active Substance: GLYCOSAMINOGLYCANS
     Indication: RASH
     Route: 062
     Dates: start: 20180928
  10. MEROPENEM. [Concomitant]
     Active Substance: MEROPENEM
     Dosage: 2V, INTRAVENOUS INJECTION IMMEDIATELY, DOSE UNKNOWN
     Route: 042
  11. SEISHOKU [Concomitant]
     Active Substance: SODIUM CHLORIDE
     Dosage: 1 KIT, INTRAVENOUS INJECTION IMMEDIATELY, DOSE UNKNOWN
     Route: 042
  12. SOLU-MEDROL [Concomitant]
     Active Substance: METHYLPREDNISOLONE SODIUM SUCCINATE
     Dosage: 100 ML, PERIPHERAL ROUTE, INTRAVENOUS INJECTION VIA A BYPASS, DOSE UNKNOWN
     Route: 042
  13. SEISHOKU [Concomitant]
     Active Substance: SODIUM CHLORIDE
     Dosage: 1 KIT, INTRAVENOUS INJECTION AT 22:00, DOSE UNKNOWN
     Route: 042

REACTIONS (12)
  - Hypoalbuminaemia [Fatal]
  - Tachycardia [Recovered/Resolved]
  - Lung disorder [Fatal]
  - Pneumonia [Unknown]
  - Pneumonia [Recovered/Resolved]
  - Malignant neoplasm progression [Unknown]
  - Constipation [Recovered/Resolved]
  - Haematochezia [Fatal]
  - Hypotension [Fatal]
  - Drug-induced liver injury [Recovered/Resolved]
  - Insomnia [Recovering/Resolving]
  - Restlessness [Recovering/Resolving]

NARRATIVE: CASE EVENT DATE: 20181008
